FAERS Safety Report 6554141-3 (Version None)
Quarter: 2010Q1

REPORT INFORMATION
  Report Type: 
  Country: None (occurrence: None)
  Receive Date: 20100125
  Receipt Date: 20100125
  Transmission Date: 20100710
  Serious: Yes (Other)
  Sender: FDA-Public Use
  Company Number: None

PATIENT
  Age: 59 Year
  Sex: Female
  Weight: 76.2043 kg

DRUGS (1)
  1. TYLENOL-500 [Suspect]
     Indication: HEADACHE
     Dosage: 2 GELCAPS PRN PO
     Route: 048
     Dates: start: 20100107, end: 20100110

REACTIONS (9)
  - ABDOMINAL PAIN [None]
  - DIARRHOEA [None]
  - DYSGEUSIA [None]
  - LIP DISORDER [None]
  - ORAL DISORDER [None]
  - OROPHARYNGEAL PAIN [None]
  - PRODUCT CONTAMINATION CHEMICAL [None]
  - PRODUCT QUALITY ISSUE [None]
  - STOMATITIS [None]
